FAERS Safety Report 5678256-7 (Version None)
Quarter: 2008Q1

REPORT INFORMATION
  Report Type: 
  Country: None (occurrence: None)
  Receive Date: 20080319
  Receipt Date: 20080305
  Transmission Date: 20080703
  Serious: Yes (Life-Threatening)
  Sender: FDA-Public Use
  Company Number: S08-FRA-00745-01

PATIENT
  Age: 49 Year
  Sex: Male
  Weight: 57 kg

DRUGS (3)
  1. ESCITALOPRAM [Suspect]
     Indication: DEPRESSION
     Dosage: 20 MG QD PO
     Route: 048
     Dates: start: 20060719, end: 20080210
  2. VOLTAREN [Suspect]
     Indication: BACK PAIN
     Dosage: 100 MG QD PO
     Route: 048
     Dates: start: 20080111, end: 20080118
  3. OMEPRAZOLE [Concomitant]

REACTIONS (3)
  - ANAEMIA [None]
  - GASTRIC ULCER [None]
  - HELICOBACTER INFECTION [None]
